FAERS Safety Report 10238797 (Version 1)
Quarter: 2014Q1

REPORT INFORMATION
  Report Type: Spontaneous
  Country: US (occurrence: None)
  Receive Date: 20140306
  Receipt Date: 20140306
  Transmission Date: 20141002
  Serious: Yes (Hospitalization)
  Sender: FDA-Public Use
  Company Number: 163-21880-13080916

PATIENT
  Age: 72 Year
  Sex: Male
  Weight: 82.1 kg

DRUGS (4)
  1. REVLIMID [Suspect]
     Indication: PLASMA CELL MYELOMA
     Route: 048
     Dates: start: 201206
  2. PREDNISONE (PREDNISONE) (TABLETS) [Concomitant]
  3. ZOMETA (ZOLEDRONIC ACID) (INJECTION) [Concomitant]
  4. ALKERAN (MELPHALAN) (TABLETS) [Concomitant]

REACTIONS (1)
  - Atrial fibrillation [None]
